FAERS Safety Report 20639218 (Version 1)
Quarter: 2022Q1

REPORT INFORMATION
  Report Type: Report from Study
  Country: US (occurrence: US)
  Receive Date: 20220326
  Receipt Date: 20220326
  Transmission Date: 20220423
  Serious: No
  Sender: FDA-Public Use
  Company Number: US-NOVARTISTESTPH-NVSC2022US068826

PATIENT
  Sex: Female

DRUGS (1)
  1. XIIDRA [Suspect]
     Active Substance: LIFITEGRAST
     Indication: Dry eye
     Dosage: UNK
     Route: 065

REACTIONS (7)
  - Migraine [Unknown]
  - Feeling abnormal [Unknown]
  - Pain [Unknown]
  - Facial pain [Unknown]
  - Toothache [Unknown]
  - Eye pain [Unknown]
  - Sinusitis [Unknown]
